FAERS Safety Report 4892613-8 (Version None)
Quarter: 2006Q1

REPORT INFORMATION
  Report Type: 
  Country: None (occurrence: None)
  Receive Date: 20060126
  Receipt Date: 20051214
  Transmission Date: 20060701
  Serious: Yes (Hospitalization)
  Sender: FDA-Public Use
  Company Number: JP-ROCHE-429120

PATIENT
  Age: 74 Year
  Sex: Female
  Weight: 58 kg

DRUGS (13)
  1. VESANOID [Suspect]
     Indication: ACUTE PROMYELOCYTIC LEUKAEMIA
     Route: 048
     Dates: start: 20050707, end: 20050829
  2. TAGAMET [Concomitant]
     Route: 048
     Dates: start: 20050707, end: 20051013
  3. DIFLUCAN [Concomitant]
     Route: 048
     Dates: start: 20050707, end: 20050818
  4. MEROPEN [Concomitant]
     Route: 041
     Dates: start: 20050707, end: 20050715
  5. EXACIN [Concomitant]
     Route: 041
     Dates: start: 20050707, end: 20050713
  6. FUNGUARD [Concomitant]
     Route: 041
     Dates: start: 20050709, end: 20050801
  7. URSO [Concomitant]
     Route: 048
     Dates: start: 20050710, end: 20050826
  8. GLYCYRON [Concomitant]
     Route: 048
     Dates: start: 20050710, end: 20050826
  9. VANCOMYCIN [Concomitant]
     Route: 041
     Dates: start: 20050713, end: 20050725
  10. TIENAM [Concomitant]
     Route: 041
     Dates: start: 20050812, end: 20050815
  11. PRODIF [Concomitant]
     Route: 041
     Dates: start: 20050817, end: 20050921
  12. CYLOCIDE [Concomitant]
     Dosage: ROUTE = INJECTABLE (NOT OTHERWISE SPECIFIED)
     Route: 050
     Dates: start: 20050826
  13. NOVANTRONE [Concomitant]
     Dosage: ROUTE = INJECTABLE (NOT OTHERWISE SPECIFIED)
     Route: 050
     Dates: start: 20050826

REACTIONS (4)
  - DEPRESSED LEVEL OF CONSCIOUSNESS [None]
  - HYPERCALCAEMIA [None]
  - INFECTION [None]
  - LIVER ABSCESS [None]
